FAERS Safety Report 9405105 (Version 1)
Quarter: 2013Q3

REPORT INFORMATION
  Report Type: Spontaneous
  Country: CA (occurrence: CA)
  Receive Date: 20130717
  Receipt Date: 20130717
  Transmission Date: 20140515
  Serious: No
  Sender: FDA-Public Use
  Company Number: CA-TEVA-416623USA

PATIENT
  Sex: Female

DRUGS (2)
  1. PLAN B ONE-STEP [Suspect]
     Indication: CONTRACEPTION
     Dosage: 2 X 0.75 MG
     Route: 048
     Dates: start: 201306, end: 201306
  2. ANTIBIOTICS [Concomitant]
     Dates: start: 201306

REACTIONS (6)
  - Vomiting [Recovered/Resolved]
  - Nausea [Unknown]
  - Abdominal pain upper [Unknown]
  - Metrorrhagia [Unknown]
  - Breast tenderness [Unknown]
  - Menstruation delayed [Unknown]
